FAERS Safety Report 7534613-5 (Version None)
Quarter: 2011Q2

REPORT INFORMATION
  Report Type: 
  Country: None (occurrence: None)
  Receive Date: 20110609
  Receipt Date: 20100716
  Transmission Date: 20111010
  Serious: Yes (Hospitalization, Other)
  Sender: FDA-Public Use
  Company Number: PHHY2010JP34074

PATIENT
  Sex: Male
  Weight: 50 kg

DRUGS (5)
  1. ASPIRIN [Concomitant]
     Dosage: 100 MG, UNK
     Route: 048
     Dates: start: 20081029, end: 20090203
  2. EXJADE [Suspect]
     Indication: MYELODYSPLASTIC SYNDROME
     Dosage: 100 MG, UNK
     Route: 048
     Dates: start: 20081029, end: 20090217
  3. RED BLOOD CELLS, CONCENTRATED [Concomitant]
     Dosage: 8 TO 12 UNITS EVERY WEEK
     Dates: start: 20081029, end: 20090413
  4. DESFERAL [Concomitant]
     Indication: IRON OVERLOAD
     Dosage: 1000 MG, UNK
     Route: 030
     Dates: start: 20071205, end: 20081029
  5. TRANSFUSIONS [Concomitant]
     Dosage: UNK
     Dates: start: 20070203

REACTIONS (2)
  - NEOPLASM MALIGNANT [None]
  - PNEUMONIA [None]
